FAERS Safety Report 16229512 (Version 1)
Quarter: 2019Q2

REPORT INFORMATION
  Report Type: Spontaneous
  Country: JP (occurrence: JP)
  Receive Date: 20190423
  Receipt Date: 20190423
  Transmission Date: 20190711
  Serious: Yes (Death)
  Sender: FDA-Public Use
  Company Number: JP-CELGENEUS-JPN-20190407805

PATIENT
  Age: 76 Year
  Sex: Male

DRUGS (2)
  1. 5-AMINOSALICYLIC ACID [Concomitant]
     Active Substance: MESALAMINE
     Indication: ILEAL ULCER
     Route: 065
  2. VIDAZA [Suspect]
     Active Substance: AZACITIDINE
     Indication: MYELODYSPLASTIC SYNDROME
     Dosage: 100 MILLIGRAM
     Route: 058

REACTIONS (2)
  - Drug ineffective [Unknown]
  - Death [Fatal]
